FAERS Safety Report 19873941 (Version 3)
Quarter: 2021Q4

REPORT INFORMATION
  Report Type: Spontaneous
  Country: US (occurrence: US)
  Receive Date: 20210922
  Receipt Date: 20211117
  Transmission Date: 20220303
  Serious: No
  Sender: FDA-Public Use
  Company Number: US-PFIZER INC-202101134661

PATIENT
  Age: 72 Year
  Sex: Female
  Weight: 56.88 kg

DRUGS (2)
  1. PREMARIN [Suspect]
     Active Substance: ESTROGENS, CONJUGATED
     Indication: Hot flush
     Dosage: 0.625 MG, 1X/DAY
     Route: 048
     Dates: end: 202108
  2. SYNTHROID [Suspect]
     Active Substance: LEVOTHYROXINE SODIUM
     Indication: Thyroid disorder
     Dosage: 75 UG, 1X/DAY
     Route: 048

REACTIONS (10)
  - Drug ineffective [Not Recovered/Not Resolved]
  - Night sweats [Unknown]
  - Intentional product misuse [Unknown]
  - Weight decreased [Unknown]
  - Visual impairment [Recovered/Resolved]
  - Eye pain [Recovered/Resolved]
  - Therapeutic response unexpected [Unknown]
  - Feeling cold [Unknown]
  - Insomnia [Unknown]
  - Thinking abnormal [Unknown]

NARRATIVE: CASE EVENT DATE: 20210801
